FAERS Safety Report 7562344-4 (Version None)
Quarter: 2011Q2

REPORT INFORMATION
  Report Type: 
  Country: None (occurrence: None)
  Receive Date: 20110620
  Receipt Date: 20110620
  Transmission Date: 20111010
  Serious: Yes (Hospitalization)
  Sender: FDA-Public Use
  Company Number: None

PATIENT
  Sex: Female

DRUGS (2)
  1. SUTENT [Suspect]
     Indication: METASTASES TO LUNG
     Dosage: 50 MG DAILY PO
     Route: 048
     Dates: start: 20110503
  2. SUTENT [Suspect]
     Indication: THYROID CANCER
     Dosage: 50 MG DAILY PO
     Route: 048
     Dates: start: 20110503

REACTIONS (1)
  - PNEUMONIA [None]
